FAERS Safety Report 7311925-1 (Version None)
Quarter: 2011Q1

REPORT INFORMATION
  Report Type: 
  Country: None (occurrence: None)
  Receive Date: 20110224
  Receipt Date: 20110216
  Transmission Date: 20110831
  Serious: Yes (Hospitalization, Other)
  Sender: FDA-Public Use
  Company Number: PHHO2011BE03037

PATIENT

DRUGS (10)
  1. SYMBICORT [Concomitant]
  2. ZOCOR [Concomitant]
  3. SIPRALEXA [Concomitant]
  4. COVERSYL                                /BEL/ [Concomitant]
  5. LETROZOLE [Suspect]
     Indication: BREAST CANCER
     Dosage: 2.5 MG, DAILY
     Route: 048
     Dates: start: 20090917, end: 20110208
  6. OMEPRAZOLE [Concomitant]
  7. SINTROM [Suspect]
     Dosage: UNK
     Route: 048
     Dates: start: 20030901
  8. TEMESTA [Concomitant]
  9. DAFALGAN [Concomitant]
  10. AMLOR [Concomitant]

REACTIONS (4)
  - HYPOXIA [None]
  - OVERDOSE [None]
  - BRONCHOSPASM [None]
  - DYSPNOEA [None]
